FAERS Safety Report 7411867-7 (Version None)
Quarter: 2011Q2

REPORT INFORMATION
  Report Type: 
  Country: None (occurrence: None)
  Receive Date: 20110405
  Receipt Date: 20110330
  Transmission Date: 20111010
  Serious: Yes (Life-Threatening, Hospitalization)
  Sender: FDA-Public Use
  Company Number: 2010SP043549

PATIENT
  Age: 49 Year
  Sex: Female

DRUGS (6)
  1. TEMODAL [Suspect]
     Indication: ANAPLASTIC ASTROCYTOMA
     Dosage: 75 MG/M2;QD;PO
     Route: 048
     Dates: start: 20100324, end: 20100504
  2. EXCEGRAN [Concomitant]
  3. RADIOTHERAPY [Concomitant]
  4. MUCOSTA [Concomitant]
  5. LOXOPROFEN (LOXOPROFEN SODIUM HYDRATE) [Concomitant]
  6. COTRIM [Concomitant]

REACTIONS (2)
  - DECREASED IMMUNE RESPONSIVENESS [None]
  - HEPATITIS B [None]
